FAERS Safety Report 11094740 (Version 1)
Quarter: 2015Q2

REPORT INFORMATION
  Report Type: Spontaneous
  Country: DE (occurrence: DE)
  Receive Date: 20150506
  Receipt Date: 20150506
  Transmission Date: 20150821
  Serious: Yes (Other)
  Sender: FDA-Public Use
  Company Number: DE-AMGEN-DEUSP2015041734

PATIENT

DRUGS (1)
  1. VECTIBIX [Suspect]
     Active Substance: PANITUMUMAB
     Indication: RECTAL CANCER METASTATIC
     Dosage: UNK
     Route: 065

REACTIONS (3)
  - Pruritus [Recovering/Resolving]
  - Blood creatinine increased [Not Recovered/Not Resolved]
  - Dyspnoea [Not Recovered/Not Resolved]
